FAERS Safety Report 4728234-7 (Version None)
Quarter: 2005Q3

REPORT INFORMATION
  Report Type: 
  Country: None (occurrence: None)
  Receive Date: 20050727
  Receipt Date: 20050606
  Transmission Date: 20060218
  Serious: Yes (Life-Threatening, Hospitalization)
  Sender: FDA-Public Use
  Company Number: 2005FR-00149

PATIENT
  Age: 80 Year

DRUGS (6)
  1. ASPIRIN [Suspect]
     Indication: MYOCARDIAL ISCHAEMIA
     Dosage: 75 MG OD ORAL
     Route: 048
     Dates: end: 20050513
  2. BENDROFLUAZIDE [Concomitant]
  3. BISOPROLOL [Concomitant]
  4. ALLOPURINOL [Concomitant]
  5. ISOSORBIDE MONONITRATE [Concomitant]
  6. NICORANDIL [Concomitant]

REACTIONS (1)
  - GASTROINTESTINAL HAEMORRHAGE [None]
